FAERS Safety Report 10228000 (Version 1)
Quarter: 2014Q2

REPORT INFORMATION
  Report Type: Spontaneous
  Country: US (occurrence: None)
  Receive Date: 20140606
  Receipt Date: 20140606
  Transmission Date: 20141212
  Serious: Yes (Hospitalization)
  Sender: FDA-Public Use
  Company Number: IPC201405-000278

PATIENT
  Age: 72 Year
  Sex: Female

DRUGS (6)
  1. LOSARTAN [Suspect]
     Indication: RENAL FAILURE CHRONIC
  2. AMITRIPTYLINE (AMITRIPTYLINE) (AMITRIPTYLINE) [Suspect]
  3. FLUTICASONE-SALMETEROL DISK [Suspect]
  4. LANSOPRAZOLE (LANSOPRAZOLE) (LANSOPRAZOLE) [Suspect]
  5. PRAMIPEXOLE [Suspect]
  6. ALBENDAZOLE [Suspect]
     Indication: TRICHINIASIS
     Route: 048

REACTIONS (19)
  - Renal failure acute [None]
  - Hypersensitivity [None]
  - Tubulointerstitial nephritis [None]
  - Hallucination, visual [None]
  - Chest X-ray abnormal [None]
  - Left atrial dilatation [None]
  - Electrocardiogram QT prolonged [None]
  - Dehydration [None]
  - Abdominal pain upper [None]
  - Pupils unequal [None]
  - Dermatitis [None]
  - Leukocytosis [None]
  - Eosinophilia [None]
  - Blood creatine phosphokinase decreased [None]
  - C-reactive protein increased [None]
  - Red blood cell sedimentation rate increased [None]
  - Bundle branch block left [None]
  - Confusional state [None]
  - Memory impairment [None]
